FAERS Safety Report 7602549-7 (Version None)
Quarter: 2011Q3

REPORT INFORMATION
  Report Type: 
  Country: None (occurrence: None)
  Receive Date: 20110701
  Receipt Date: 20100708
  Transmission Date: 20111222
  Serious: Yes (Other)
  Sender: FDA-Public Use
  Company Number: SIM_00011_2011

PATIENT
  Sex: Female

DRUGS (2)
  1. CHILDRENS EARACHE RELIEF (HOMEOPATHIC) [Suspect]
     Indication: OTITIS EXTERNA
     Dosage: (DF AURICULAR (OTIC))
     Route: 001
     Dates: start: 20100705, end: 20100705
  2. CHILDRENS EARACHE RELIEF (HOMEOPATHIC) [Suspect]
     Indication: EAR PAIN
     Dosage: (DF AURICULAR (OTIC))
     Route: 001
     Dates: start: 20100705, end: 20100705

REACTIONS (1)
  - EAR PAIN [None]
